FAERS Safety Report 9030544 (Version 1)
Quarter: 2013Q1

REPORT INFORMATION
  Report Type: Spontaneous
  Country: US (occurrence: US)
  Receive Date: 20130122
  Receipt Date: 20130122
  Transmission Date: 20140127
  Serious: Yes (Other)
  Sender: FDA-Public Use
  Company Number: US-PFIZER INC-2013024500

PATIENT
  Age: 60 Year
  Sex: Female
  Weight: 91.61 kg

DRUGS (5)
  1. PRISTIQ [Suspect]
     Indication: ANXIETY
     Dosage: 100 MG, 1X/DAY
     Route: 048
  2. PRISTIQ [Suspect]
     Indication: DEPRESSION
  3. GABAPENTIN [Concomitant]
     Dosage: 100 MG, UNK
  4. ATENOLOL [Concomitant]
     Indication: HYPERTENSION
     Dosage: UNK, 1X/DAY
  5. LISINOPRIL [Concomitant]
     Indication: HYPERTENSION
     Dosage: UNK, 1X/DAY

REACTIONS (2)
  - Intervertebral disc disorder [Unknown]
  - Gait disturbance [Unknown]
